FAERS Safety Report 12684302 (Version 1)
Quarter: 2016Q3

REPORT INFORMATION
  Report Type: Spontaneous
  Country: US (occurrence: US)
  Receive Date: 20160825
  Receipt Date: 20160825
  Transmission Date: 20161109
  Serious: No
  Sender: FDA-Public Use
  Company Number: US-ASTRAZENECA-2016SE88284

PATIENT
  Age: 45 Year
  Sex: Female
  Weight: 45.4 kg

DRUGS (6)
  1. DIAZAPAM [Concomitant]
     Indication: PAIN
  2. THIAMIN [Concomitant]
     Active Substance: THIAMINE
     Indication: HYPOVITAMINOSIS
  3. TRAMDOL [Concomitant]
     Indication: PAIN
  4. MAGNESIUM [Concomitant]
     Active Substance: MAGNESIUM
     Indication: HYPOVITAMINOSIS
  5. MOVANTIK [Suspect]
     Active Substance: NALOXEGOL OXALATE
     Indication: CONSTIPATION
     Route: 048
     Dates: start: 2016
  6. WARFARIN [Concomitant]
     Active Substance: WARFARIN
     Indication: THROMBOSIS

REACTIONS (4)
  - Product quality issue [Unknown]
  - Intentional product use issue [Unknown]
  - Weight abnormal [Unknown]
  - Sensation of foreign body [Unknown]

NARRATIVE: CASE EVENT DATE: 2016
